FAERS Safety Report 6301187-6 (Version None)
Quarter: 2009Q3

REPORT INFORMATION
  Report Type: 
  Country: None (occurrence: None)
  Receive Date: 20090807
  Receipt Date: 20090728
  Transmission Date: 20100115
  Serious: Yes (Hospitalization)
  Sender: FDA-Public Use
  Company Number: PHHO2009IT02659

PATIENT
  Sex: Female

DRUGS (2)
  1. ACZ885 ACZ+ [Suspect]
     Indication: RHEUMATOID ARTHRITIS
     Dosage: UNK
     Route: 042
     Dates: start: 20081120, end: 20081120
  2. ACZ885 ACZ+ [Suspect]
     Dosage: UNK
     Route: 042
     Dates: start: 20090527

REACTIONS (5)
  - ANAEMIA [None]
  - BACK PAIN [None]
  - RECTAL HAEMORRHAGE [None]
  - SPINAL FRACTURE [None]
  - TRANSIENT ISCHAEMIC ATTACK [None]
